FAERS Safety Report 20843799 (Version 1)
Quarter: 2022Q2

REPORT INFORMATION
  Report Type: Spontaneous
  Country: US (occurrence: US)
  Receive Date: 20220518
  Receipt Date: 20220518
  Transmission Date: 20220721
  Serious: Yes (Other)
  Sender: FDA-Public Use
  Company Number: US-PFIZER INC-202200661627

PATIENT
  Age: 75 Year
  Sex: Female
  Weight: 87.09 kg

DRUGS (4)
  1. ACCUPRIL [Suspect]
     Active Substance: QUINAPRIL HYDROCHLORIDE
     Indication: Blood pressure increased
     Dosage: 20 MG, 1X/DAY
  2. TALTZ [Concomitant]
     Active Substance: IXEKIZUMAB
     Indication: Psoriatic arthropathy
     Dosage: 80 MG
  3. XARELTO [Concomitant]
     Active Substance: RIVAROXABAN
     Dosage: UNK
  4. REMICADE [Concomitant]
     Active Substance: INFLIXIMAB

REACTIONS (4)
  - Cystitis [Unknown]
  - Hypertension [Recovering/Resolving]
  - Pruritus [Unknown]
  - Recalled product administered [Unknown]
